FAERS Safety Report 24695839 (Version 2)
Quarter: 2024Q4

REPORT INFORMATION
  Report Type: Spontaneous
  Country: PL (occurrence: PL)
  Receive Date: 20241204
  Receipt Date: 20241218
  Transmission Date: 20250115
  Serious: Yes (Hospitalization, Other)
  Sender: CELLTRION
  Company Number: PL-AMGEN-POLSP2024100433

PATIENT

DRUGS (14)
  1. ADALIMUMAB [Suspect]
     Active Substance: ADALIMUMAB
     Indication: Ankylosing spondylitis
     Dosage: UNK (DOSAGE1: UNIT=NOT AVAILABLE)
     Route: 058
     Dates: start: 2019, end: 20221221
  2. KETOPROFEN [Concomitant]
     Active Substance: KETOPROFEN
     Dosage: 2X50MG
  3. SULFASALAZINE [Concomitant]
     Active Substance: SULFASALAZINE
     Dosage: 500 MILLIGRAM
  4. METHYLPREDNISOLONE [Concomitant]
     Active Substance: METHYLPREDNISOLONE
     Dosage: 6 MILLIGRAM
  5. TOLPERISONE HYDROCHLORIDE [Concomitant]
     Active Substance: TOLPERISONE HYDROCHLORIDE
     Dosage: 50 MILLIGRAM
  6. OMEPRAZOLE [Concomitant]
     Active Substance: OMEPRAZOLE
     Dosage: 20 MILLIGRAM
  7. METOCLOPRAMIDE HYDROCHLORIDE [Concomitant]
     Active Substance: METOCLOPRAMIDE HYDROCHLORIDE
     Dosage: 10 MILLIGRAM
  8. TRAMADOL [Concomitant]
     Active Substance: TRAMADOL
     Dosage: 50 MILLIGRAM
  9. RANIGAST [RANITIDINE HYDROCHLORIDE] [Concomitant]
     Dosage: 12 TABLETS
  10. CLORAZEPATE DIPOTASSIUM [Concomitant]
     Active Substance: CLORAZEPATE DIPOTASSIUM
     Dosage: 5 MILLIGRAM
  11. ACETAMINOPHEN\TRAMADOL HYDROCHLORIDE [Concomitant]
     Active Substance: ACETAMINOPHEN\TRAMADOL HYDROCHLORIDE
     Dosage: UNK
  12. DICLOFENAC SODIUM [Concomitant]
     Active Substance: DICLOFENAC SODIUM
     Dosage: UNK
  13. DEXAK [Concomitant]
     Dosage: UNK
  14. PANTOPRAZOLE SODIUM [Concomitant]
     Active Substance: PANTOPRAZOLE SODIUM
     Dosage: UNK

REACTIONS (6)
  - Unevaluable event [Unknown]
  - Ankylosing spondylitis [Unknown]
  - Uveitis [Unknown]
  - C-reactive protein increased [Unknown]
  - Headache [Unknown]
  - Drug ineffective [Unknown]

NARRATIVE: CASE EVENT DATE: 20200518
